FAERS Safety Report 8058804-2 (Version None)
Quarter: 2012Q1

REPORT INFORMATION
  Report Type: 
  Country: None (occurrence: None)
  Receive Date: 20120120
  Receipt Date: 20111108
  Transmission Date: 20120608
  Serious: Yes (Other)
  Sender: FDA-Public Use
  Company Number: US-BRISTOL-MYERS SQUIBB COMPANY-15999774

PATIENT
  Age: 55 Year
  Sex: Female

DRUGS (1)
  1. YERVOY [Suspect]
     Indication: METASTATIC MALIGNANT MELANOMA
     Dosage: THERAPY FROM 21-JUL-2011 TO 29-SEP-2011 (11 WKS), RESTARTED ON 8SEP11 AND FINAL DOSE ON 06-OCT-2011.
     Route: 042
     Dates: start: 20110721

REACTIONS (2)
  - RASH GENERALISED [None]
  - PRURITUS [None]
